FAERS Safety Report 8884616 (Version 1)
Quarter: 2012Q4

REPORT INFORMATION
  Report Type: 
  Country: IT (occurrence: IT)
  Receive Date: 20121102
  Receipt Date: 20121102
  Transmission Date: 20130627
  Serious: Yes (Other)
  Sender: FDA-Public Use
  Company Number: IT-BAYER-2012-111963

PATIENT
  Age: 72 Year
  Sex: Male

DRUGS (4)
  1. ASPIRINA [Suspect]
     Indication: COMMON COLD SYNDROME
     Dosage: 1000 mg, ONCE
     Route: 048
     Dates: start: 20120921, end: 20120921
  2. METOPROLOL [Concomitant]
  3. BLOPRESID [Concomitant]
  4. TORVAST [Concomitant]

REACTIONS (2)
  - Face oedema [Recovered/Resolved]
  - Pharyngeal erythema [Recovered/Resolved]
